FAERS Safety Report 5724475-0 (Version None)
Quarter: 2008Q2

REPORT INFORMATION
  Report Type: 
  Country: None (occurrence: None)
  Receive Date: 20080429
  Receipt Date: 20080418
  Transmission Date: 20081010
  Serious: Yes (Death)
  Sender: FDA-Public Use
  Company Number: E2020-02567-CLI-CA

PATIENT
  Age: 75 Year
  Sex: Female
  Weight: 61 kg

DRUGS (8)
  1. DONEPEZIL HCL [Suspect]
     Indication: DEMENTIA ALZHEIMER'S TYPE
     Dosage: 5 MG, 1 IN 1 D, ORAL
     Route: 048
     Dates: start: 20071215, end: 20080127
  2. ATIVAN [Concomitant]
  3. METFORMIN HCL [Concomitant]
  4. METOCLOPRAMIDE [Concomitant]
  5. ASPIRIN [Concomitant]
  6. BISOPROLOL (BISOPROLOL) [Concomitant]
  7. TRAZODONE HCL [Concomitant]
  8. CIPRO [Concomitant]

REACTIONS (4)
  - CHEST PAIN [None]
  - HYPOTENSION [None]
  - OEDEMA [None]
  - TACHYCARDIA [None]
